FAERS Safety Report 17025265 (Version 3)
Quarter: 2020Q1

REPORT INFORMATION
  Report Type: Spontaneous
  Country: CZ (occurrence: CZ)
  Receive Date: 20191113
  Receipt Date: 20200129
  Transmission Date: 20200409
  Serious: Yes (Other)
  Sender: FDA-Public Use
  Company Number: NVSC2019CZ031552

PATIENT
  Sex: Male

DRUGS (5)
  1. ZOLEDRONIC ACID [Concomitant]
     Active Substance: ZOLEDRONIC ACID
     Indication: BACK PAIN
     Dosage: 1 DF, Q4W (INITIATION BY 4 MG INTRAVENOUSLY, FOLLOWING BY A DOSE EACH 4 WEEKS)
     Route: 065
     Dates: start: 20110315, end: 20150602
  2. PREDNISONE. [Suspect]
     Active Substance: PREDNISONE
     Indication: PROSTATE CANCER
     Dosage: UNK (5-5-0 MG)
     Route: 065
     Dates: start: 20130218, end: 20131014
  3. OXYCODONE HYDROCHLORIDE. [Concomitant]
     Active Substance: OXYCODONE HYDROCHLORIDE
     Indication: PRODUCT USED FOR UNKNOWN INDICATION
     Dosage: UNK, QD
     Route: 065
  4. CALCIUM [Concomitant]
     Active Substance: CALCIUM
     Indication: BACK PAIN
     Dosage: UNK
     Route: 065
     Dates: start: 201103
  5. DOCETAXEL. [Suspect]
     Active Substance: DOCETAXEL
     Indication: PROSTATE CANCER
     Dosage: 75 MG/M2 TIW  (EVERY 21 DAYS)
     Route: 042
     Dates: start: 20130218, end: 20131014

REACTIONS (3)
  - Paraesthesia [Not Recovered/Not Resolved]
  - Neutropenia [Recovered/Resolved]
  - Leukopenia [Recovered/Resolved]
